FAERS Safety Report 6696387-X (Version None)
Quarter: 2010Q2

REPORT INFORMATION
  Report Type: 
  Country: None (occurrence: None)
  Receive Date: 20100426
  Receipt Date: 20100414
  Transmission Date: 20101027
  Serious: Yes (Hospitalization)
  Sender: FDA-Public Use
  Company Number: TR-ELI_LILLY_AND_COMPANY-TR201004003966

PATIENT
  Age: 26 Year
  Sex: Female

DRUGS (5)
  1. HUMULIN N [Suspect]
     Indication: GESTATIONAL DIABETES
     Dosage: 5 U, EACH MORNING
     Route: 058
     Dates: start: 20091001
  2. HUMULIN N [Suspect]
     Dosage: 8 U, DAILY (1/D)
     Route: 058
     Dates: start: 20091001
  3. HUMULIN N [Suspect]
     Dosage: 8 U, EACH EVENING
     Route: 058
     Dates: start: 20091001
  4. HUMULIN R [Suspect]
     Indication: GESTATIONAL DIABETES
     Dosage: 5 U, EACH EVENING
     Route: 058
     Dates: start: 20091001
  5. FERROUS GLYCINE SULFATE [Concomitant]
     Indication: ANAEMIA
     Dosage: UNK, UNKNOWN
     Dates: start: 20091001

REACTIONS (2)
  - DRUG EXPOSURE DURING PREGNANCY [None]
  - HAEMORRHAGE [None]
